FAERS Safety Report 16900719 (Version 1)
Quarter: 2019Q4

REPORT INFORMATION
  Report Type: Spontaneous
  Country: US (occurrence: US)
  Receive Date: 20191009
  Receipt Date: 20191009
  Transmission Date: 20200122
  Serious: No
  Sender: FDA-Public Use
  Company Number: US-SA-2019SA273330

PATIENT
  Sex: Female

DRUGS (7)
  1. GABAPENTIN. [Concomitant]
     Active Substance: GABAPENTIN
  2. CITALOPRAM-HORMOSAN [Concomitant]
  3. COLACE [Concomitant]
     Active Substance: DOCUSATE SODIUM
  4. EXCEDRIN MIGRAINE [Concomitant]
     Active Substance: ACETAMINOPHEN\ASPIRIN\CAFFEINE
  5. CYCLOBENZAPRIN [Concomitant]
     Active Substance: CYCLOBENZAPRINE
  6. AUBAGIO [Suspect]
     Active Substance: TERIFLUNOMIDE
     Dosage: 1 DF, QD
     Route: 048
     Dates: start: 20190917
  7. BUPROPION. [Concomitant]
     Active Substance: BUPROPION
     Dosage: UNK

REACTIONS (6)
  - Tremor [Unknown]
  - Memory impairment [Unknown]
  - Gait disturbance [Unknown]
  - Reading disorder [Unknown]
  - Hypoaesthesia [Unknown]
  - Drug ineffective [Unknown]
